FAERS Safety Report 12442747 (Version 3)
Quarter: 2016Q3

REPORT INFORMATION
  Report Type: Report from Study
  Country: BR (occurrence: BR)
  Receive Date: 20160607
  Receipt Date: 20160718
  Transmission Date: 20161109
  Serious: Yes (Other)
  Sender: FDA-Public Use
  Company Number: PHHY2016BR076812

PATIENT
  Sex: Female
  Weight: 70 kg

DRUGS (4)
  1. CLOPIDOGREL [Suspect]
     Active Substance: CLOPIDOGREL BISULFATE
     Indication: THROMBOSIS PROPHYLAXIS
     Dosage: 75 MG, QD
     Route: 048
  2. ANGIPRESS [Concomitant]
     Active Substance: ATENOLOL
     Indication: HYPERTENSION
     Route: 065
  3. DIOVAN [Suspect]
     Active Substance: VALSARTAN
     Indication: HYPERTENSION
     Dosage: 80 MG, QD (1 TABLET AT 8 AM) (28 TABLETS)
     Route: 048
  4. PLAVIX [Concomitant]
     Active Substance: CLOPIDOGREL BISULFATE
     Indication: THROMBOSIS PROPHYLAXIS
     Dosage: 75 MG, QD
     Route: 048

REACTIONS (7)
  - Hypotension [Unknown]
  - Blindness unilateral [Unknown]
  - Ear disorder [Recovering/Resolving]
  - Retinal vascular thrombosis [Recovering/Resolving]
  - Blood pressure increased [Unknown]
  - Cerebrovascular accident [Unknown]
  - Anxiety [Not Recovered/Not Resolved]
